FAERS Safety Report 20046692 (Version 2)
Quarter: 2021Q4

REPORT INFORMATION
  Report Type: Spontaneous
  Country: US (occurrence: US)
  Receive Date: 20211109
  Receipt Date: 20211112
  Transmission Date: 20220303
  Serious: Yes (Life-Threatening, Hospitalization)
  Sender: FDA-Public Use
  Company Number: US-JNJFOC-20211103327

PATIENT
  Age: 39 Year
  Sex: Female
  Weight: 49 kg

DRUGS (4)
  1. TYLENOL PM [Suspect]
     Active Substance: ACETAMINOPHEN\DIPHENHYDRAMINE
     Indication: Back pain
     Dosage: ACETAMINOPHEN 500 MG/DIPHENHYDRAMINE 25 MG
     Route: 048
     Dates: end: 20021015
  2. PERCOCET [Suspect]
     Active Substance: ACETAMINOPHEN\OXYCODONE HYDROCHLORIDE
     Indication: Back pain
     Route: 048
     Dates: end: 20021015
  3. VICODIN [Suspect]
     Active Substance: ACETAMINOPHEN\HYDROCODONE BITARTRATE
     Indication: Back pain
     Route: 048
     Dates: end: 20021015
  4. SOMA [Suspect]
     Active Substance: CARISOPRODOL
     Indication: Back pain
     Route: 048
     Dates: end: 20021015

REACTIONS (6)
  - Acute hepatic failure [Recovered/Resolved]
  - Acute kidney injury [Recovered/Resolved]
  - Pneumonia [Unknown]
  - Emphysema [Unknown]
  - Product administration error [Recovered/Resolved]
  - Accidental overdose [Recovered/Resolved]

NARRATIVE: CASE EVENT DATE: 20021019
